FAERS Safety Report 8621331-5 (Version None)
Quarter: 2012Q3

REPORT INFORMATION
  Report Type: 
  Country: None (occurrence: None)
  Receive Date: 20120824
  Receipt Date: 20120820
  Transmission Date: 20120928
  Serious: Yes (Hospitalization)
  Sender: FDA-Public Use
  Company Number: JP-009507513-1201USA01988

PATIENT

DRUGS (5)
  1. METFORMIN HCL [Suspect]
     Indication: BLOOD GLUCOSE INCREASED
     Dosage: 500 MG, QD
     Route: 048
     Dates: start: 20101101, end: 20110101
  2. JANUVIA [Suspect]
     Indication: BLOOD GLUCOSE INCREASED
     Dosage: 100 MG, QD
     Route: 048
     Dates: start: 20100901, end: 20110301
  3. MICARDIS [Suspect]
     Indication: HYPERTENSION
     Dosage: 80 MG, QD
     Route: 048
     Dates: start: 20100601
  4. ACTOS [Suspect]
     Indication: BLOOD GLUCOSE INCREASED
     Dosage: 7.5 MG, QD
     Route: 048
     Dates: start: 20110101, end: 20110301
  5. CANDESARTAN CILEXETIL [Suspect]
     Indication: BLOOD PRESSURE INCREASED
     Dosage: 8 MG, QD
     Route: 048
     Dates: start: 20100601, end: 20110401

REACTIONS (1)
  - TUBULOINTERSTITIAL NEPHRITIS [None]
